FAERS Safety Report 25259103 (Version 3)
Quarter: 2025Q2

REPORT INFORMATION
  Report Type: Report from Study
  Country: RU (occurrence: RU)
  Receive Date: 20250501
  Receipt Date: 20250515
  Transmission Date: 20250717
  Serious: Yes (Hospitalization, Other)
  Sender: NOVARTIS
  Company Number: RU-002147023-NVSC2025RU069633

PATIENT
  Age: 3 Year
  Sex: Female
  Weight: 14.5 kg

DRUGS (15)
  1. ZOLGENSMA [Suspect]
     Active Substance: ONASEMNOGENE ABEPARVOVEC-XIOI
     Indication: Spinal muscular atrophy
     Route: 041
     Dates: start: 20250319, end: 20250319
  2. PREDNISOLONE [Concomitant]
     Active Substance: PREDNISOLONE
     Indication: Product used for unknown indication
     Route: 048
     Dates: start: 20250317, end: 20250326
  3. PREDNISOLONE [Concomitant]
     Active Substance: PREDNISOLONE
     Dosage: 15 MG, QD (GRADUAL DISCONTINUATION ACCORDING TO THE PLANNED SCHEME)
     Route: 065
     Dates: start: 20250404, end: 20250409
  4. METHYLPREDNISOLONE [Concomitant]
     Active Substance: METHYLPREDNISOLONE
     Indication: Product used for unknown indication
     Route: 041
     Dates: start: 20250326, end: 20250326
  5. DEXTROSE [Concomitant]
     Active Substance: DEXTROSE MONOHYDRATE
     Indication: Product used for unknown indication
     Route: 041
     Dates: start: 20250321, end: 20250322
  6. DEXTROSE [Concomitant]
     Active Substance: DEXTROSE MONOHYDRATE
     Route: 041
     Dates: start: 20250326, end: 20250326
  7. CHOLECALCIFEROL [Concomitant]
     Active Substance: CHOLECALCIFEROL
     Indication: Product used for unknown indication
     Dosage: 2500 IU, QD
     Route: 065
     Dates: start: 20250309, end: 20250326
  8. CHOLECALCIFEROL [Concomitant]
     Active Substance: CHOLECALCIFEROL
     Dosage: 3000 IU, QD (IN THE MORNING)
     Route: 048
     Dates: start: 20250404, end: 20250409
  9. RISDIPLAM [Concomitant]
     Active Substance: RISDIPLAM
     Indication: Product used for unknown indication
     Route: 065
  10. FUROSEMIDE [Concomitant]
     Active Substance: FUROSEMIDE
     Indication: Product used for unknown indication
     Route: 041
  11. CALCIUM CARBONATE [Concomitant]
     Active Substance: CALCIUM CARBONATE
     Indication: Product used for unknown indication
     Dosage: 0.5 G, QD
     Route: 065
     Dates: start: 20250404, end: 20250409
  12. MAGNESIUM ASPARTATE\POTASSIUM ASPARTATE [Concomitant]
     Active Substance: MAGNESIUM ASPARTATE\POTASSIUM ASPARTATE
     Indication: Product used for unknown indication
     Route: 065
  13. ALFACALCIDOL [Concomitant]
     Active Substance: ALFACALCIDOL
     Indication: Product used for unknown indication
     Route: 065
  14. NEXIUM [Concomitant]
     Active Substance: ESOMEPRAZOLE MAGNESIUM
     Indication: Product used for unknown indication
     Dosage: 10 MG, QD
     Route: 065
     Dates: start: 20250404, end: 20250409
  15. LEVOCARNITINE [Concomitant]
     Active Substance: LEVOCARNITINE
     Indication: Product used for unknown indication
     Dosage: UNK, BID 30 PERCENT (3 DROPS)
     Route: 065
     Dates: start: 20250404, end: 20250409

REACTIONS (19)
  - Thrombotic microangiopathy [Not Recovered/Not Resolved]
  - Nausea [Unknown]
  - Vomiting [Unknown]
  - Haemolytic uraemic syndrome [Unknown]
  - Urine output decreased [Recovered/Resolved]
  - Anuria [Recovered/Resolved]
  - Chromaturia [Recovered/Resolved]
  - Chromaturia [Unknown]
  - Acute kidney injury [Recovering/Resolving]
  - Polyuria [Unknown]
  - Platelet count decreased [Unknown]
  - Hepatotoxicity [Not Recovered/Not Resolved]
  - Urinary incontinence [Unknown]
  - Hypersensitivity [Unknown]
  - Rash [Unknown]
  - Blood lactate dehydrogenase increased [Unknown]
  - Pyrexia [Unknown]
  - Abdominal pain [Unknown]
  - Hyperthermia [Unknown]

NARRATIVE: CASE EVENT DATE: 20250321
